FAERS Safety Report 4480016-X (Version None)
Quarter: 2004Q4

REPORT INFORMATION
  Report Type: 
  Country: None (occurrence: None)
  Receive Date: 20041018
  Receipt Date: 20040930
  Transmission Date: 20050328
  Serious: Yes (Death, Hospitalization)
  Sender: FDA-Public Use
  Company Number: DSA_25095_2004

PATIENT
  Age: 25 Year

DRUGS (3)
  1. DILTIAZEM [Suspect]
     Dosage: DF
  2. PROPRANOLOL [Suspect]
     Dosage: DF
  3. ETHANOL [Suspect]
     Dosage: DF

REACTIONS (2)
  - CARDIO-RESPIRATORY ARREST [None]
  - MULTIPLE DRUG OVERDOSE [None]
